FAERS Safety Report 6968623-3 (Version None)
Quarter: 2010Q3

REPORT INFORMATION
  Report Type: 
  Country: None (occurrence: None)
  Receive Date: 20100907
  Receipt Date: 20100831
  Transmission Date: 20110219
  Serious: Yes (Other)
  Sender: FDA-Public Use
  Company Number: KR-JNJFOC-20100901056

PATIENT
  Age: 61 Year
  Sex: Female

DRUGS (3)
  1. ULTRACET [Suspect]
     Indication: PARAESTHESIA
     Dosage: TRAMADOL HCL 37.5 MG AND ACETAMINOPHEN 325 MG
     Route: 048
  2. ULTRACET [Suspect]
     Indication: PAIN
     Dosage: TRAMADOL HCL 37.5 MG AND ACETAMINOPHEN 325 MG
     Route: 048
  3. MANY OTHER UNSPECIFIED MEDICATIONS [Concomitant]
     Indication: PRODUCT USED FOR UNKNOWN INDICATION
     Route: 065

REACTIONS (4)
  - DIPLOPIA [None]
  - HAEMORRHAGE INTRACRANIAL [None]
  - PAIN [None]
  - PARAESTHESIA [None]
